FAERS Safety Report 15452505 (Version 1)
Quarter: 2018Q4

REPORT INFORMATION
  Report Type: Report from Study
  Country: US (occurrence: US)
  Receive Date: 20181001
  Receipt Date: 20181001
  Transmission Date: 20190204
  Serious: Yes (Other)
  Sender: FDA-Public Use
  Company Number: US-JAZZ-2018-US-010276

PATIENT
  Sex: Female

DRUGS (21)
  1. MODAFINIL. [Concomitant]
     Active Substance: MODAFINIL
  2. OMEPRAZOLE. [Concomitant]
     Active Substance: OMEPRAZOLE
  3. CALCIUM [Concomitant]
     Active Substance: CALCIUM
  4. COENZYME Q10 [Concomitant]
     Active Substance: UBIDECARENONE
  5. SPIRONOLACTONE. [Concomitant]
     Active Substance: SPIRONOLACTONE
  6. BIOTIN [Concomitant]
     Active Substance: BIOTIN
  7. FISH OIL [Concomitant]
     Active Substance: FISH OIL
  8. GABAPENTIN. [Concomitant]
     Active Substance: GABAPENTIN
  9. WELLBUTRIN [Concomitant]
     Active Substance: BUPROPION HYDROCHLORIDE
  10. NEURONTIN [Concomitant]
     Active Substance: GABAPENTIN
  11. MAGNESIUM GLUCONATE [Concomitant]
     Active Substance: MAGNESIUM GLUCONATE
  12. TOPROL XL [Concomitant]
     Active Substance: METOPROLOL SUCCINATE
  13. CYMBALTA [Concomitant]
     Active Substance: DULOXETINE HYDROCHLORIDE
  14. SOMA [Concomitant]
     Active Substance: CARISOPRODOL
  15. XYREM [Suspect]
     Active Substance: SODIUM OXYBATE
     Indication: NARCOLEPSY
     Dosage: 3.25 G, BID
     Route: 048
     Dates: start: 201805, end: 2018
  16. XYREM [Suspect]
     Active Substance: SODIUM OXYBATE
     Dosage: 3.25 G, BID
     Route: 048
     Dates: start: 2018
  17. CLONAZEPAM. [Concomitant]
     Active Substance: CLONAZEPAM
  18. TURMERIC [Concomitant]
     Active Substance: HERBALS\TURMERIC
  19. TYLENOL EXTRA STRENGTH [Concomitant]
     Active Substance: ACETAMINOPHEN
  20. VITAMIN D3 [Concomitant]
     Active Substance: CHOLECALCIFEROL
  21. IBUPROFEN. [Concomitant]
     Active Substance: IBUPROFEN

REACTIONS (3)
  - Oesophagitis [Recovering/Resolving]
  - Sleep apnoea syndrome [Not Recovered/Not Resolved]
  - Oesophageal spasm [Recovered/Resolved]

NARRATIVE: CASE EVENT DATE: 2018
